FAERS Safety Report 7979618-5 (Version None)
Quarter: 2011Q4

REPORT INFORMATION
  Report Type: 
  Country: None (occurrence: None)
  Receive Date: 20111201
  Receipt Date: 20111122
  Transmission Date: 20120403
  Serious: Yes (Other)
  Sender: FDA-Public Use
  Company Number: A0954260A

PATIENT
  Age: 81 Year
  Sex: Male

DRUGS (1)
  1. SODIUM FLUORIDE + POTASSIUM NITRATE TOOTHPAST (SODIUM FLUORIDE + POTAS [Suspect]
     Indication: SENSITIVITY OF TEETH
     Dosage: //DENTAL
     Route: 004
     Dates: start: 20111101

REACTIONS (7)
  - SPEECH DISORDER [None]
  - DYSPNOEA [None]
  - CONTUSION [None]
  - SWOLLEN TONGUE [None]
  - TONGUE DISORDER [None]
  - MACROGLOSSIA [None]
  - DYSPHAGIA [None]
